FAERS Safety Report 23314892 (Version 1)
Quarter: 2023Q4

REPORT INFORMATION
  Report Type: Spontaneous
  Country: US (occurrence: None)
  Receive Date: 20231218
  Receipt Date: 20231218
  Transmission Date: 20240110
  Serious: Yes (Hospitalization)
  Sender: FDA-Public Use
  Company Number: None

PATIENT
  Age: 81 Year
  Sex: Female

DRUGS (1)
  1. PROLIA [Suspect]
     Active Substance: DENOSUMAB
     Indication: Osteoporosis
     Dosage: OTHER FREQUENCY : EVERY 6 MIONTHS;?
     Route: 058
     Dates: start: 20230601

REACTIONS (3)
  - Fall [None]
  - Spinal fracture [None]
  - Neuropathy peripheral [None]

NARRATIVE: CASE EVENT DATE: 20231128
